FAERS Safety Report 7449711-4 (Version None)
Quarter: 2011Q1

REPORT INFORMATION
  Report Type: 
  Country: None (occurrence: None)
  Receive Date: 20110302
  Receipt Date: 20101130
  Transmission Date: 20110831
  Serious: No
  Sender: FDA-Public Use
  Company Number: 023004

PATIENT
  Sex: Female
  Weight: 62.6 kg

DRUGS (4)
  1. MIDRIN [Concomitant]
  2. ALPRAZOLAM [Concomitant]
  3. DESVENLAFAXIN [Concomitant]
  4. CIMZIA [Suspect]
     Indication: CROHN'S DISEASE
     Dosage: 400 MG 1X/MONTH, MONTHLY SUBCUTANEOUS
     Route: 058
     Dates: start: 20100910, end: 20101105

REACTIONS (9)
  - NODULE [None]
  - CHEILITIS [None]
  - RASH PRURITIC [None]
  - HYPERSENSITIVITY [None]
  - GASTROINTESTINAL PAIN [None]
  - ABDOMINAL DISCOMFORT [None]
  - LIP SWELLING [None]
  - RASH ERYTHEMATOUS [None]
  - VULVOVAGINAL DISCOMFORT [None]
